FAERS Safety Report 5143848-0 (Version None)
Quarter: 2006Q4

REPORT INFORMATION
  Report Type: 
  Country: None (occurrence: None)
  Receive Date: 20061106
  Receipt Date: 20061011
  Transmission Date: 20070319
  Serious: Yes (Life-Threatening, Other)
  Sender: FDA-Public Use
  Company Number: PHMT2006CA01950

PATIENT
  Age: 57 Year
  Sex: Female

DRUGS (10)
  1. ZYPREXA [Concomitant]
  2. SEROQUEL [Concomitant]
  3. RIVOTRIL [Concomitant]
  4. PAXIL [Concomitant]
  5. REQUIP [Concomitant]
  6. NITOMAN [Concomitant]
  7. PANTOLOC ^SOLVAY^ [Concomitant]
  8. SODIUM CITRATE [Concomitant]
  9. CLOZARIL [Suspect]
     Indication: SCHIZOPHRENIA
     Dosage: 37.5 MG DAILY
     Route: 048
     Dates: start: 20060927, end: 20061005
  10. CLOZARIL [Suspect]
     Dates: start: 20000101

REACTIONS (2)
  - HAEMATOLOGY TEST ABNORMAL [None]
  - NEUROLEPTIC MALIGNANT SYNDROME [None]
